FAERS Safety Report 6787579-X (Version None)
Quarter: 2010Q2

REPORT INFORMATION
  Report Type: 
  Country: None (occurrence: None)
  Receive Date: 20100623
  Receipt Date: 20070601
  Transmission Date: 20101027
  Serious: Yes (Other)
  Sender: FDA-Public Use
  Company Number: US-PFIZER INC-2007044220

PATIENT
  Sex: Male
  Weight: 82.727 kg

DRUGS (4)
  1. SUTENT [Suspect]
     Indication: METASTATIC RENAL CELL CARCINOMA
     Dates: start: 20061218
  2. DRUG, UNSPECIFIED [Concomitant]
  3. IRON [Concomitant]
  4. FRAGMIN [Concomitant]

REACTIONS (1)
  - HAEMORRHAGIC DIATHESIS [None]
